FAERS Safety Report 8780167 (Version 2)
Quarter: 2012Q4

REPORT INFORMATION
  Report Type: Spontaneous
  Country: US (occurrence: None)
  Receive Date: 20120828
  Receipt Date: 20120905
  Transmission Date: 20130627
  Serious: Yes (Other)
  Sender: FDA-Public Use
  Company Number: AUR-APL-2012-03626

PATIENT
  Age: 47 Year
  Sex: Male
  Weight: 105 kg

DRUGS (4)
  1. SIMVASTATIN (SIMVASTATIN) [Suspect]
     Indication: HYPERCHOLESTEROLEMIA
     Route: 048
     Dates: start: 20050323
  2. RAMIPRIL (RAMIPRIL) [Concomitant]
     Indication: HYPERTENSION
     Route: 048
     Dates: start: 20070131
  3. RAMIPRIL (RAMIPRIL) [Concomitant]
     Indication: HYPERTENSION
  4. AMLODIPINE (AMLODIPINE) [Concomitant]

REACTIONS (1)
  - Cataract [None]
